FAERS Safety Report 5358056-8 (Version None)
Quarter: 2007Q2

REPORT INFORMATION
  Report Type: 
  Country: None (occurrence: None)
  Receive Date: 20070530
  Receipt Date: 20061215
  Transmission Date: 20071010
  Serious: Yes (Hospitalization)
  Sender: FDA-Public Use
  Company Number: US200611000924

PATIENT
  Age: 47 Year
  Sex: Male
  Weight: 77.1 kg

DRUGS (1)
  1. ZYPREXA [Suspect]
     Dosage: 10 MG
     Dates: start: 20040124

REACTIONS (2)
  - CONVULSION [None]
  - DIABETES MELLITUS [None]
